FAERS Safety Report 7260666-8 (Version None)
Quarter: 2011Q1

REPORT INFORMATION
  Report Type: 
  Country: None (occurrence: None)
  Receive Date: 20110130
  Receipt Date: 20101111
  Transmission Date: 20110831
  Serious: No
  Sender: FDA-Public Use
  Company Number: US-ABBOTT-10P-163-0684851-00

PATIENT
  Age: 44 Year
  Sex: Male

DRUGS (3)
  1. MULTI-VITAMIN [Concomitant]
     Indication: PRODUCT USED FOR UNKNOWN INDICATION
     Route: 048
  2. HUMIRA [Suspect]
     Indication: CROHN'S DISEASE
     Dates: start: 20100922
  3. ENTOCORT EC [Concomitant]
     Indication: CROHN'S DISEASE
     Route: 048

REACTIONS (4)
  - GASTROENTERITIS VIRAL [None]
  - DIARRHOEA [None]
  - VOMITING [None]
  - COUGH [None]
